FAERS Safety Report 5859169-4 (Version None)
Quarter: 2008Q3

REPORT INFORMATION
  Report Type: 
  Country: None (occurrence: None)
  Receive Date: 20080826
  Receipt Date: 20080826
  Transmission Date: 20090109
  Serious: Yes (Other)
  Sender: FDA-Public Use
  Company Number: None

PATIENT
  Age: 51 Year
  Sex: Male
  Weight: 72.5755 kg

DRUGS (2)
  1. CHANTIX [Suspect]
     Dosage: 1MG BID PO
     Route: 048
     Dates: start: 20080701
  2. TAGAMET [Concomitant]

REACTIONS (2)
  - DEPRESSION [None]
  - TREATMENT NONCOMPLIANCE [None]
